FAERS Safety Report 5316681-4 (Version None)
Quarter: 2007Q2

REPORT INFORMATION
  Report Type: 
  Country: None (occurrence: None)
  Receive Date: 20070504
  Receipt Date: 20070425
  Transmission Date: 20071010
  Serious: Yes (Death)
  Sender: FDA-Public Use
  Company Number: AT-BRISTOL-MYERS SQUIBB COMPANY-13761259

PATIENT
  Age: 77 Year
  Sex: Female
  Weight: 120 kg

DRUGS (4)
  1. MAXIPIME [Suspect]
     Indication: LUNG INFECTION
     Dates: start: 20040117, end: 20040122
  2. MAXIPIME [Suspect]
     Indication: GENITOURINARY TRACT INFECTION
     Dates: start: 20040117, end: 20040122
  3. GENTAMICIN [Suspect]
     Indication: LUNG INFECTION
     Dates: start: 20040117, end: 20040122
  4. GENTAMICIN [Suspect]
     Indication: GENITOURINARY TRACT INFECTION
     Dates: start: 20040117, end: 20040122

REACTIONS (1)
  - MULTI-ORGAN FAILURE [None]
